FAERS Safety Report 5378603-X (Version None)
Quarter: 2007Q3

REPORT INFORMATION
  Report Type: 
  Country: None (occurrence: None)
  Receive Date: 20070702
  Receipt Date: 20070702
  Transmission Date: 20080115
  Serious: Yes (Other)
  Sender: FDA-Public Use
  Company Number: None

PATIENT
  Age: 52 Year
  Sex: Female
  Weight: 68.0396 kg

DRUGS (1)
  1. MY ALLI    OVER-THE-COUNTER-ALLI STRENGTH [Suspect]
     Dosage: 1 PILL PER MEAL 3 TIMES A DAY
     Dates: start: 20070622, end: 20070624

REACTIONS (1)
  - CHEST PAIN [None]
